FAERS Safety Report 8404122-X (Version None)
Quarter: 2012Q2

REPORT INFORMATION
  Report Type: 
  Country: None (occurrence: None)
  Receive Date: 20120601
  Receipt Date: 20120523
  Transmission Date: 20120825
  Serious: Yes (Hospitalization, Other)
  Sender: FDA-Public Use
  Company Number: US-US-EMD SERONO, INC.-7135054

PATIENT
  Sex: Female

DRUGS (1)
  1. REBIF [Suspect]
     Indication: PRODUCT USED FOR UNKNOWN INDICATION
     Dates: start: 20100701

REACTIONS (6)
  - KIDNEY ENLARGEMENT [None]
  - GASTRITIS [None]
  - CHOLANGITIS [None]
  - UTERINE LEIOMYOMA [None]
  - HEPATIC CYST [None]
  - ABDOMINAL DISTENSION [None]
